FAERS Safety Report 5706610-3 (Version None)
Quarter: 2008Q2

REPORT INFORMATION
  Report Type: 
  Country: None (occurrence: None)
  Receive Date: 20080415
  Receipt Date: 20080402
  Transmission Date: 20081010
  Serious: Yes (Disabling)
  Sender: FDA-Public Use
  Company Number: NL-ELI_LILLY_AND_COMPANY-NL200804000835

PATIENT
  Sex: Female
  Weight: 80 kg

DRUGS (2)
  1. PROZAC [Suspect]
     Indication: DEPRESSION
     Dosage: 30 MG, DAILY (1/D)
     Route: 048
     Dates: start: 20030101
  2. TETANUS VACCINE [Concomitant]
     Dosage: UNK UNK, OTHER
     Route: 030
     Dates: start: 20040101, end: 20080101

REACTIONS (1)
  - COLITIS COLLAGENOUS [None]
